FAERS Safety Report 8045276-7 (Version None)
Quarter: 2012Q1

REPORT INFORMATION
  Report Type: 
  Country: None (occurrence: None)
  Receive Date: 20120113
  Receipt Date: 20120109
  Transmission Date: 20120608
  Serious: Yes (Other)
  Sender: FDA-Public Use
  Company Number: US-PFIZER INC-2012007138

PATIENT
  Sex: Female

DRUGS (3)
  1. LYRICA [Suspect]
     Dosage: UNK
  2. CELEBREX [Suspect]
     Dosage: UNK
  3. CYMBALTA [Suspect]

REACTIONS (6)
  - APPARENT DEATH [None]
  - INFECTION [None]
  - FURUNCLE [None]
  - PAIN [None]
  - BACK DISORDER [None]
  - DEPRESSION [None]
